FAERS Safety Report 23797082 (Version 2)
Quarter: 2024Q2

REPORT INFORMATION
  Report Type: Report from Study
  Country: US (occurrence: US)
  Receive Date: 20240430
  Receipt Date: 20240624
  Transmission Date: 20240716
  Serious: Yes (Other)
  Sender: FDA-Public Use
  Company Number: US-ABBVIE-5736592

PATIENT
  Age: 64 Year
  Sex: Male

DRUGS (1)
  1. HUMIRA [Suspect]
     Active Substance: ADALIMUMAB
     Indication: Rheumatoid arthritis
     Dosage: FORM STRENGTH UNITS: 40 MILLIGRAM CITRATE FREE
     Route: 058
     Dates: start: 20230321

REACTIONS (3)
  - Aspiration joint [Unknown]
  - Joint effusion [Recovered/Resolved]
  - Discharge [Unknown]

NARRATIVE: CASE EVENT DATE: 20230621
